FAERS Safety Report 24427326 (Version 1)
Quarter: 2024Q4

REPORT INFORMATION
  Report Type: Spontaneous
  Country: PL (occurrence: PL)
  Receive Date: 20241011
  Receipt Date: 20241011
  Transmission Date: 20250115
  Serious: Yes (Life-Threatening, Hospitalization, Other)
  Sender: PFIZER
  Company Number: PL-PFIZER INC-PV202400130561

PATIENT
  Age: 3 Year
  Sex: Female

DRUGS (7)
  1. METHYLPREDNISOLONE SODIUM SUCCINATE [Suspect]
     Active Substance: METHYLPREDNISOLONE SODIUM SUCCINATE
     Indication: Haemophagocytic lymphohistiocytosis
     Dosage: 30 MG/KG, DAILY (FOR 5 DAYS WITH 1 DAY BREAK BETWEEN 4TH AND 5TH DOSE)
     Route: 042
  2. CYCLOSPORINE [Suspect]
     Active Substance: CYCLOSPORINE
     Indication: Haemophagocytic lymphohistiocytosis
     Dosage: 3.5 MG/KG, DAILY (INITIAL)
     Route: 048
  3. CYCLOSPORINE [Suspect]
     Active Substance: CYCLOSPORINE
     Dosage: 5 MG/KG DAILY (AFTER 2 DAYS)
     Route: 048
  4. FUROSEMIDE [Suspect]
     Active Substance: FUROSEMIDE
     Indication: Haemophagocytic lymphohistiocytosis
     Dosage: UNK
  5. SPIRONOLACTONE [Suspect]
     Active Substance: SPIRONOLACTONE
     Indication: Haemophagocytic lymphohistiocytosis
     Dosage: UNK
  6. MANNITOL [Suspect]
     Active Substance: MANNITOL
     Indication: Haemophagocytic lymphohistiocytosis
     Dosage: UNK
  7. ANAKINRA [Concomitant]
     Active Substance: ANAKINRA
     Indication: Haemophagocytic lymphohistiocytosis
     Dosage: 4 MG/KG, DAILY
     Route: 058

REACTIONS (2)
  - Off label use [Unknown]
  - Drug ineffective for unapproved indication [Recovered/Resolved]
